FAERS Safety Report 22256769 (Version 4)
Quarter: 2023Q2

REPORT INFORMATION
  Report Type: Spontaneous
  Country: US (occurrence: US)
  Receive Date: 20230426
  Receipt Date: 20230616
  Transmission Date: 20230721
  Serious: Yes (Death, Hospitalization)
  Sender: FDA-Public Use
  Company Number: US-BEIGENE-BGN-2023-003385

PATIENT

DRUGS (1)
  1. BRUKINSA [Suspect]
     Active Substance: ZANUBRUTINIB
     Indication: Waldenstrom^s macroglobulinaemia
     Dosage: 160 MILLIGRAM, QD
     Dates: start: 20211009, end: 20230408

REACTIONS (4)
  - Cough [Fatal]
  - Hypoxia [Fatal]
  - COVID-19 pneumonia [Fatal]
  - Prescribed underdose [Unknown]
